FAERS Safety Report 12937356 (Version 1)
Quarter: 2016Q4

REPORT INFORMATION
  Report Type: Spontaneous
  Country: US (occurrence: US)
  Receive Date: 20161114
  Receipt Date: 20161114
  Transmission Date: 20170207
  Serious: No
  Sender: FDA-Public Use
  Company Number: US-PFIZER INC-3073136

PATIENT
  Sex: Male

DRUGS (2)
  1. DIAZEPAM. [Suspect]
     Active Substance: DIAZEPAM
     Indication: SEIZURE
     Dosage: 5-10 MG; X1
     Route: 042
  2. SODIUM CHLORIDE. [Suspect]
     Active Substance: SODIUM CHLORIDE
     Indication: MEDICATION DILUTION
     Dosage: 5 ML

REACTIONS (5)
  - Liquid product physical issue [Recovered/Resolved]
  - Product deposit [Recovered/Resolved]
  - Poor quality drug administered [Recovered/Resolved]
  - No adverse event [Unknown]
  - Product preparation error [Recovered/Resolved]
